FAERS Safety Report 24191877 (Version 1)
Quarter: 2024Q3

REPORT INFORMATION
  Report Type: Spontaneous
  Country: CA (occurrence: CA)
  Receive Date: 20240809
  Receipt Date: 20240809
  Transmission Date: 20241017
  Serious: Yes (Other)
  Sender: SANOFI AVENTIS
  Company Number: None

PATIENT
  Age: 73 Year
  Sex: Female
  Weight: 83 kg

DRUGS (9)
  1. ADMELOG [Suspect]
     Active Substance: INSULIN LISPRO
     Indication: Diabetes mellitus
     Dosage: 12 U, TID
     Route: 058
     Dates: start: 20231001, end: 20231016
  2. INSULIN ASPART [Suspect]
     Active Substance: INSULIN ASPART
     Indication: Diabetes mellitus
     Dosage: 12 IU, TID
     Route: 058
     Dates: start: 20231016, end: 20231024
  3. ASPIRIN [Concomitant]
     Active Substance: ASPIRIN
  4. ATACAND [Concomitant]
     Active Substance: CANDESARTAN CILEXETIL
  5. JANUMET [Concomitant]
     Active Substance: METFORMIN HYDROCHLORIDE\SITAGLIPTIN PHOSPHATE
     Route: 065
  6. LANTUS [Concomitant]
     Active Substance: INSULIN GLARGINE
     Route: 058
  7. METOPROLOL [Concomitant]
     Active Substance: METOPROLOL
     Route: 065
  8. RABEPRAZOLE [Concomitant]
     Active Substance: RABEPRAZOLE
  9. SIMVASTATIN [Concomitant]
     Active Substance: SIMVASTATIN

REACTIONS (8)
  - Headache [Recovered/Resolved]
  - Hyperhidrosis [Recovered/Resolved]
  - Hypertension [Recovered/Resolved]
  - Presyncope [Recovered/Resolved]
  - Asthenia [Recovered/Resolved]
  - Hyperglycaemia [Recovered/Resolved]
  - Similar reaction on previous exposure to drug [Recovered/Resolved]
  - Product substitution issue [Recovered/Resolved]

NARRATIVE: CASE EVENT DATE: 20231001
